FAERS Safety Report 5922918-0 (Version None)
Quarter: 2008Q4

REPORT INFORMATION
  Report Type: 
  Country: None (occurrence: None)
  Receive Date: 20081017
  Receipt Date: 20081007
  Transmission Date: 20090506
  Serious: Yes (Hospitalization)
  Sender: FDA-Public Use
  Company Number: SG-BAXTER-2008BH010685

PATIENT
  Age: 60 Year
  Sex: Female
  Weight: 84 kg

DRUGS (21)
  1. EXTRANEAL [Suspect]
     Indication: RENAL FAILURE CHRONIC
     Route: 033
     Dates: start: 20080523
  2. PHYSIONEAL 35 VIAFLEX [Suspect]
     Indication: RENAL FAILURE CHRONIC
     Dates: start: 20080523, end: 20080915
  3. NUTRINEAL PD4 VIAFLEX [Suspect]
     Indication: RENAL FAILURE CHRONIC
     Route: 033
     Dates: start: 20080523
  4. PHYSIONEAL 40 VIAFLEX [Suspect]
     Indication: RENAL FAILURE CHRONIC
     Route: 033
     Dates: start: 20080523
  5. ASPIRIN [Concomitant]
     Route: 048
  6. OMEPRAZOLE [Concomitant]
     Indication: PROPHYLAXIS
     Route: 048
  7. MUPIROCIN [Concomitant]
     Route: 061
  8. VITAMIN B AND C COMPLEX [Concomitant]
     Indication: VITAMIN SUPPLEMENTATION
     Route: 048
  9. SIMVASTATIN [Concomitant]
     Indication: HYPERLIPIDAEMIA
     Route: 048
  10. POTASSIUM CHLORIDE [Concomitant]
     Indication: BLOOD POTASSIUM
     Route: 048
     Dates: start: 20080724
  11. SENNA [Concomitant]
     Indication: CONSTIPATION
     Route: 048
  12. CALCITRIOL [Concomitant]
     Indication: HYPOCALCAEMIA
     Route: 048
     Dates: start: 20080520
  13. AMLODIPINE [Concomitant]
     Indication: HYPERTENSION
     Route: 048
  14. FRUSEMIDE [Concomitant]
     Indication: FLUID RETENTION
     Route: 048
     Dates: end: 20070614
  15. AQUEOUS CREAM [Concomitant]
     Indication: PRURITUS
     Route: 061
     Dates: end: 20070614
  16. CALCIUM ACETATE [Concomitant]
     Indication: BLOOD PHOSPHORUS
     Route: 048
     Dates: end: 20070927
  17. EPOETIN BETA [Concomitant]
     Indication: ANAEMIA
     Route: 058
  18. CALCITRIOL [Concomitant]
     Route: 048
     Dates: start: 20070724, end: 20080520
  19. POTASSIUM CHLORIDE [Concomitant]
     Route: 048
     Dates: end: 20080728
  20. CALCITRIOL [Concomitant]
     Route: 048
     Dates: start: 20070929, end: 20080725
  21. CALCITRIOL [Concomitant]
     Route: 048
     Dates: end: 20070929

REACTIONS (1)
  - CELLULITIS [None]
